FAERS Safety Report 5595972-6 (Version None)
Quarter: 2008Q1

REPORT INFORMATION
  Report Type: 
  Country: None (occurrence: None)
  Receive Date: 20080118
  Receipt Date: 20080109
  Transmission Date: 20080703
  Serious: Yes (Other)
  Sender: FDA-Public Use
  Company Number: GB-ASTRAZENECA-2007GB02054

PATIENT
  Age: 58 Year
  Sex: Female

DRUGS (20)
  1. LIDOCAINE [Suspect]
     Indication: PERIOPERATIVE ANALGESIA
     Route: 047
     Dates: start: 20070614, end: 20070614
  2. LIDOCAINE [Suspect]
     Indication: CATARACT OPERATION
     Route: 047
     Dates: start: 20070614, end: 20070614
  3. CYCLOPENTOLATE HCL [Suspect]
     Indication: PREOPERATIVE CARE
     Route: 047
     Dates: start: 20070614, end: 20070614
  4. CYCLOPENTOLATE HCL [Suspect]
     Dosage: DOSE INCREASED
     Route: 047
  5. DEXAMETHASONE TAB [Suspect]
     Indication: POSTOPERATIVE CARE
     Route: 047
     Dates: start: 20070614, end: 20070614
  6. GLYCEROL 2.6% [Suspect]
     Indication: CATARACT OPERATION
     Route: 047
     Dates: start: 20070614, end: 20070614
  7. GLYCEROL 2.6% [Suspect]
     Indication: PREOPERATIVE CARE
     Route: 047
     Dates: start: 20070614, end: 20070614
  8. HYALURONATE SODIUM [Suspect]
     Indication: PERIOPERATIVE ANALGESIA
     Route: 047
     Dates: start: 20070614, end: 20070614
  9. HYALURONATE SODIUM [Suspect]
     Indication: CATARACT OPERATION
     Route: 047
     Dates: start: 20070614, end: 20070614
  10. OCUFEN [Suspect]
     Indication: PREOPERATIVE CARE
     Route: 047
     Dates: start: 20070614, end: 20070614
  11. OFLOXACIN [Suspect]
     Indication: POSTOPERATIVE CARE
     Route: 047
     Dates: start: 20070614, end: 20070614
  12. OFLOXACIN [Suspect]
     Indication: CATARACT OPERATION
     Route: 047
     Dates: start: 20070614, end: 20070614
  13. PHENYLEPHRINE [Suspect]
     Indication: PREOPERATIVE CARE
     Route: 047
     Dates: start: 20070614, end: 20070614
  14. PHENYLEPHRINE [Suspect]
     Dosage: DOSE INCREASED
     Route: 047
  15. POVIDONE IODINE [Suspect]
     Indication: PREOPERATIVE CARE
     Route: 047
     Dates: start: 20070614, end: 20070614
  16. POVIDONE IODINE [Suspect]
     Indication: CATARACT OPERATION
     Route: 047
     Dates: start: 20070614, end: 20070614
  17. PROXYMETACAINE [Suspect]
     Indication: PERIOPERATIVE ANALGESIA
     Route: 065
     Dates: start: 20070614, end: 20070614
  18. ADRENALINE [Suspect]
     Indication: EYE IRRIGATION
     Route: 047
     Dates: start: 20070614, end: 20070614
  19. VANCOMYCIN [Suspect]
     Indication: EYE IRRIGATION
     Route: 047
     Dates: start: 20070614, end: 20070614
  20. BALANCED SALT SOLUTION [Suspect]
     Indication: CATARACT OPERATION
     Route: 031
     Dates: start: 20070614, end: 20070614

REACTIONS (1)
  - TOXIC ANTERIOR SEGMENT SYNDROME [None]
